FAERS Safety Report 8804500 (Version 2)
Quarter: 2012Q4

REPORT INFORMATION
  Report Type: 
  Country: NL (occurrence: NL)
  Receive Date: 20120924
  Receipt Date: 20121003
  Transmission Date: 20130627
  Serious: Yes (Death, Life-Threatening, Hospitalization)
  Sender: FDA-Public Use
  Company Number: NL-TEVA-359575ISR

PATIENT
  Age: 84 Year
  Sex: Male
  Weight: 82 kg

DRUGS (6)
  1. METFORMIN [Suspect]
     Indication: TYPE 2 DIABETES MELLITUS
     Dosage: 3000 Milligram Daily;
     Route: 048
     Dates: start: 20120606, end: 20120821
  2. FUROSEMIDE TABLET 20MG [Concomitant]
     Dosage: 1dd 20 mg
     Route: 048
     Dates: start: 20120606
  3. METOPROLOL TABLET MGA 200MG (SUCCINAAT) [Concomitant]
     Dosage: 1 dd 200 mg
     Route: 048
     Dates: start: 20120609
  4. ALLOPURINOL TABLET 100MG [Concomitant]
     Dosage: 1dd 100 mg
     Route: 048
     Dates: start: 20120609
  5. KETOCONAZOL CREME  20MG/G [Concomitant]
     Dosage: 20mg/g
     Route: 003
     Dates: start: 20120606
  6. ENALAPRIL/HYDROCHLOORTHIAZIDE TABLET 20/12,5MG [Concomitant]
     Dosage: 1 dd 10 mg
     Route: 048
     Dates: start: 20120606

REACTIONS (8)
  - Lactic acidosis [Fatal]
  - Sepsis [Fatal]
  - Respiratory failure [Fatal]
  - Haemodynamic instability [Fatal]
  - Renal failure acute [Unknown]
  - Diarrhoea [Recovered/Resolved]
  - Dehydration [None]
  - Hypophagia [None]
